FAERS Safety Report 25525282 (Version 1)
Quarter: 2025Q3

REPORT INFORMATION
  Report Type: Spontaneous
  Country: US (occurrence: US)
  Receive Date: 20250707
  Receipt Date: 20250707
  Transmission Date: 20251020
  Serious: No
  Sender: SANOFI AVENTIS
  Company Number: US-SA-2025SA190036

PATIENT
  Sex: Female

DRUGS (10)
  1. DUPIXENT [Suspect]
     Active Substance: DUPILUMAB
     Indication: Chronic obstructive pulmonary disease
     Dosage: 300 MG, QOW
     Route: 058
     Dates: start: 20250605
  2. AZITHROMYCIN [Concomitant]
     Active Substance: AZITHROMYCIN
  3. CARVEDILOL [Concomitant]
     Active Substance: CARVEDILOL
  4. CETIRIZINE [Concomitant]
     Active Substance: CETIRIZINE HYDROCHLORIDE
  5. FLUTICASONE [Concomitant]
     Active Substance: FLUTICASONE
  6. FUROSEMIDE [Concomitant]
     Active Substance: FUROSEMIDE
  7. ISOSORBIDE [Concomitant]
     Active Substance: ISOSORBIDE
  8. MONTELUKAST [Concomitant]
     Active Substance: MONTELUKAST
  9. RALOXIFENE [Concomitant]
     Active Substance: RALOXIFENE
  10. ROSUVASTATIN [Concomitant]
     Active Substance: ROSUVASTATIN

REACTIONS (1)
  - Headache [Unknown]

NARRATIVE: CASE EVENT DATE: 20250101
